FAERS Safety Report 14911075 (Version 1)
Quarter: 2018Q2

REPORT INFORMATION
  Report Type: Spontaneous
  Country: CA (occurrence: CA)
  Receive Date: 20180518
  Receipt Date: 20180518
  Transmission Date: 20180711
  Serious: Yes (Disabling)
  Sender: FDA-Public Use
  Company Number: CA-CONCORDIA PHARMACEUTICALS INC.-GSH201805-001660

PATIENT
  Age: 61 Year
  Sex: Male

DRUGS (8)
  1. PLAQUENIL [Suspect]
     Active Substance: HYDROXYCHLOROQUINE SULFATE
     Indication: PRODUCT USED FOR UNKNOWN INDICATION
     Route: 065
  2. ORENCIA [Suspect]
     Active Substance: ABATACEPT
     Indication: PRODUCT USED FOR UNKNOWN INDICATION
     Route: 065
  3. SIMPONI [Suspect]
     Active Substance: GOLIMUMAB
     Indication: PRODUCT USED FOR UNKNOWN INDICATION
     Route: 065
  4. METHOTREXATE. [Suspect]
     Active Substance: METHOTREXATE
     Indication: RHEUMATOID ARTHRITIS
     Route: 065
  5. PREDNISONE. [Concomitant]
     Active Substance: PREDNISONE
  6. ALLOPURINOL. [Concomitant]
     Active Substance: ALLOPURINOL
  7. HUMIRA [Suspect]
     Active Substance: ADALIMUMAB
     Indication: PRODUCT USED FOR UNKNOWN INDICATION
     Route: 065
  8. HYDROMORPH CONTIN [Concomitant]
     Active Substance: HYDROMORPHONE

REACTIONS (9)
  - Pain [Unknown]
  - Pain in extremity [Unknown]
  - Skin exfoliation [Unknown]
  - Fatigue [Unknown]
  - Influenza [Unknown]
  - Rheumatoid arthritis [Unknown]
  - Skin burning sensation [Unknown]
  - Injection site pain [Unknown]
  - Drug ineffective [Unknown]
